FAERS Safety Report 25606941 (Version 1)
Quarter: 2025Q3

REPORT INFORMATION
  Report Type: Spontaneous
  Country: US (occurrence: US)
  Receive Date: 20250725
  Receipt Date: 20250725
  Transmission Date: 20251020
  Serious: Yes (Hospitalization, Other)
  Sender: AMGEN
  Company Number: US-AMGEN-USASP2025144121

PATIENT
  Age: 54 Year
  Sex: Male

DRUGS (12)
  1. PREDNISONE [Suspect]
     Active Substance: PREDNISONE
     Indication: Acute respiratory distress syndrome
     Route: 065
  2. PREDNISONE [Suspect]
     Active Substance: PREDNISONE
     Dosage: 10 MILLIGRAM, QD, SUBSEQUENTLY TAPERED
     Route: 065
  3. PREDNISONE [Suspect]
     Active Substance: PREDNISONE
     Dosage: 60 MILLIGRAM, QD
     Route: 065
  4. PREDNISONE [Suspect]
     Active Substance: PREDNISONE
     Route: 065
  5. LEVOFLOXACIN [Suspect]
     Active Substance: LEVOFLOXACIN
     Indication: Product used for unknown indication
     Route: 065
  6. MITOMYCIN C [Concomitant]
     Active Substance: MITOMYCIN
     Route: 040
  7. FLUOROURACIL [Concomitant]
     Active Substance: FLUOROURACIL
     Route: 065
  8. SULFAMETHOXAZOLE\TRIMETHOPRIM [Concomitant]
     Active Substance: SULFAMETHOXAZOLE\TRIMETHOPRIM
  9. METHYLPREDNISOLONE [Concomitant]
     Active Substance: METHYLPREDNISOLONE
     Dosage: 40 MILLIGRAM, Q6H
  10. METHYLPREDNISOLONE [Concomitant]
     Active Substance: METHYLPREDNISOLONE
     Dosage: 60 MILLIGRAM, Q6H
  11. ALBUTEROL\IPRATROPIUM [Concomitant]
     Active Substance: ALBUTEROL\IPRATROPIUM
     Route: 065
  12. SOLU-MEDROL [Concomitant]
     Active Substance: METHYLPREDNISOLONE SODIUM SUCCINATE
     Dosage: 60 MILLIGRAM, TID
     Route: 065

REACTIONS (4)
  - Pneumonitis [Unknown]
  - Acute respiratory failure [Unknown]
  - Drug effective for unapproved indication [Unknown]
  - Off label use [Unknown]
